FAERS Safety Report 12373343 (Version 2)
Quarter: 2016Q2

REPORT INFORMATION
  Report Type: Spontaneous
  Country: US (occurrence: US)
  Receive Date: 20160516
  Receipt Date: 20160630
  Transmission Date: 20160815
  Serious: Yes (Other)
  Sender: FDA-Public Use
  Company Number: US-JNJFOC-20160509129

PATIENT
  Age: 67 Year
  Sex: Female
  Weight: 69.85 kg

DRUGS (5)
  1. MEPREDNISONE [Concomitant]
     Active Substance: MEPREDNISONE
     Dosage: W/ DARZALEX
  2. SINGULAIR [Concomitant]
     Active Substance: MONTELUKAST SODIUM
  3. OXYCONTIN [Concomitant]
     Active Substance: OXYCODONE HYDROCHLORIDE
     Indication: PAIN
  4. DARZALEX [Suspect]
     Active Substance: DARATUMUMAB
     Indication: PLASMA CELL MYELOMA
     Dosage: X 9 CYCLES
     Route: 042
     Dates: start: 20160425, end: 20160425
  5. LISINOPRIL. [Concomitant]
     Active Substance: LISINOPRIL
     Indication: HYPERTENSION

REACTIONS (2)
  - Blister [Recovered/Resolved]
  - Infusion related reaction [Recovered/Resolved]

NARRATIVE: CASE EVENT DATE: 20160425
